FAERS Safety Report 6333313-7 (Version None)
Quarter: 2009Q3

REPORT INFORMATION
  Report Type: 
  Country: None (occurrence: None)
  Receive Date: 20090828
  Receipt Date: 20090819
  Transmission Date: 20100115
  Serious: Yes (Hospitalization)
  Sender: FDA-Public Use
  Company Number: SE-JNJCH-2009022938

PATIENT
  Sex: Female

DRUGS (2)
  1. CETIRIZINE HYDROCHLORIDE [Suspect]
     Indication: HYPERSENSITIVITY
     Dosage: TEXT:UNKNOWN
     Route: 048
     Dates: start: 20090501, end: 20090601
  2. ANTIHISTAMINES [Concomitant]
     Indication: HYPERSENSITIVITY
     Dosage: TEXT:UNKNOWN
     Route: 047

REACTIONS (5)
  - ABNORMAL BEHAVIOUR [None]
  - HALLUCINATION, AUDITORY [None]
  - HEADACHE [None]
  - NAUSEA [None]
  - SKIN DISCOMFORT [None]
